FAERS Safety Report 8842502 (Version 1)
Quarter: 2012Q4

REPORT INFORMATION
  Report Type: 
  Country: US (occurrence: US)
  Receive Date: 20121016
  Receipt Date: 20121016
  Transmission Date: 20130627
  Serious: No
  Sender: FDA-Public Use
  Company Number: US-PFIZER INC-2012250010

PATIENT
  Sex: Male
  Weight: 79.37 kg

DRUGS (6)
  1. CELEBREX [Suspect]
     Dosage: UNK
     Route: 048
  2. TYLENOL [Suspect]
     Indication: OSTEOARTHRITIS
     Dosage: UNK
     Dates: start: 201210, end: 201210
  3. LIPITOR [Concomitant]
     Indication: BLOOD CHOLESTEROL INCREASED
     Dosage: 20 mg, daily
     Route: 048
  4. DIGOXIN [Concomitant]
     Indication: ATRIAL FIBRILLATION
     Dosage: 0.25 mg, daily
  5. COUMADIN [Concomitant]
     Indication: ATRIAL FIBRILLATION
     Dosage: UNK
  6. CARDIZEM [Concomitant]
     Indication: ATRIAL FIBRILLATION
     Dosage: UNK

REACTIONS (3)
  - Renal disorder [Unknown]
  - Blood creatinine increased [Unknown]
  - Drug ineffective [Unknown]
